FAERS Safety Report 8666908 (Version 2)
Quarter: 2015Q2

REPORT INFORMATION
  Report Type: Report from Study
  Country: US (occurrence: US)
  Receive Date: 20120716
  Receipt Date: 20150622
  Transmission Date: 20150821
  Serious: Yes (Death)
  Sender: FDA-Public Use
  Company Number: US-ROCHE-1086789

PATIENT
  Age: 94 Year
  Sex: Male

DRUGS (5)
  1. TETRAVISC [Concomitant]
     Active Substance: TETRACAINE HYDROCHLORIDE
  2. LUCENTIS [Suspect]
     Active Substance: RANIBIZUMAB
     Indication: NEOVASCULAR AGE-RELATED MACULAR DEGENERATION
     Route: 050
     Dates: start: 20081229, end: 20090709
  3. BETADINE [Concomitant]
     Active Substance: POVIDONE-IODINE
     Route: 061
  4. LIDOCAINE. [Concomitant]
     Active Substance: LIDOCAINE
     Route: 057
  5. PROPARACAINE [Concomitant]
     Active Substance: PROPARACAINE
     Route: 061

REACTIONS (1)
  - Death [Fatal]

NARRATIVE: CASE EVENT DATE: 20090813
